FAERS Safety Report 15111161 (Version 1)
Quarter: 2018Q3

REPORT INFORMATION
  Report Type: Spontaneous
  Country: US (occurrence: US)
  Receive Date: 20180705
  Receipt Date: 20180705
  Transmission Date: 20181010
  Serious: Yes (Other)
  Sender: FDA-Public Use
  Company Number: US-MYLANLABS-2018M1046611

PATIENT
  Sex: Male
  Weight: 100 kg

DRUGS (1)
  1. NIFEDIPINE EXTENDED?RELEASE TABLETS, USP [Suspect]
     Active Substance: NIFEDIPINE
     Indication: HYPERTENSION
     Dosage: UNK
     Route: 048
     Dates: start: 20171231

REACTIONS (1)
  - Neuropathy peripheral [Not Recovered/Not Resolved]
